FAERS Safety Report 10764076 (Version 1)
Quarter: 2015Q1

REPORT INFORMATION
  Report Type: Report from Study
  Country: AU (occurrence: AU)
  Receive Date: 20150204
  Receipt Date: 20150204
  Transmission Date: 20150721
  Serious: Yes (Other)
  Sender: FDA-Public Use
  Company Number: AU-BRISTOL-MYERS SQUIBB COMPANY-BMS-2014-004313

PATIENT
  Age: 70 Year
  Sex: Female

DRUGS (7)
  1. CLEXANE [Concomitant]
     Active Substance: ENOXAPARIN SODIUM
  2. EFFEXOR [Concomitant]
     Active Substance: VENLAFAXINE HYDROCHLORIDE
  3. PANADOL [Concomitant]
     Active Substance: ACETAMINOPHEN
  4. ABATACEPT [Suspect]
     Active Substance: ABATACEPT
     Indication: RHEUMATOID ARTHRITIS
     Dosage: 125 MG, QWK
     Route: 058
     Dates: start: 20141204
  5. PREDNISONE. [Concomitant]
     Active Substance: PREDNISONE
  6. AROMASIN [Concomitant]
     Active Substance: EXEMESTANE
  7. COVERSYL                           /00790702/ [Concomitant]
     Active Substance: PERINDOPRIL

REACTIONS (4)
  - Thoracic vertebral fracture [Not Recovered/Not Resolved]
  - Intervertebral disc compression [Unknown]
  - Musculoskeletal chest pain [Not Recovered/Not Resolved]
  - Rheumatoid arthritis [Not Recovered/Not Resolved]

NARRATIVE: CASE EVENT DATE: 20141215
